FAERS Safety Report 19887224 (Version 1)
Quarter: 2021Q3

REPORT INFORMATION
  Report Type: Spontaneous
  Country: CO (occurrence: CO)
  Receive Date: 20210928
  Receipt Date: 20210928
  Transmission Date: 20211014
  Serious: No
  Sender: FDA-Public Use
  Company Number: CO-AMGEN-COLSP2021147421

PATIENT
  Age: 43 Year
  Sex: Male
  Weight: 88 kg

DRUGS (5)
  1. NEULASTIM [Suspect]
     Active Substance: PEGFILGRASTIM
     Indication: SOFT TISSUE SARCOMA
     Dosage: 6 MILLIGRAM EVERY 21 DAYS
     Route: 058
     Dates: start: 20210917
  2. MESNA. [Concomitant]
     Active Substance: MESNA
     Dosage: 5790 MILLIGRAM, QMO
     Route: 042
     Dates: start: 20210917
  3. IFOSFAMIDE. [Concomitant]
     Active Substance: IFOSFAMIDE
     Dosage: 5790 MILLIGRAM, QMO
     Route: 042
     Dates: start: 20210917
  4. NEULASTIM [Suspect]
     Active Substance: PEGFILGRASTIM
     Indication: OFF LABEL USE
  5. NEULASTIM [Suspect]
     Active Substance: PEGFILGRASTIM
     Indication: MALIGNANT CONNECTIVE TISSUE NEOPLASM

REACTIONS (2)
  - Device leakage [Unknown]
  - Off label use [Unknown]

NARRATIVE: CASE EVENT DATE: 20210917
